FAERS Safety Report 19399965 (Version 1)
Quarter: 2021Q2

REPORT INFORMATION
  Report Type: Spontaneous
  Country: BR (occurrence: BR)
  Receive Date: 20210610
  Receipt Date: 20210610
  Transmission Date: 20210717
  Serious: Yes (Other)
  Sender: FDA-Public Use
  Company Number: BR-TAKEDA-2021TUS035507

PATIENT
  Age: 63 Year
  Sex: Female

DRUGS (6)
  1. MESALAZINE [Suspect]
     Active Substance: MESALAMINE
     Indication: PRODUCT USED FOR UNKNOWN INDICATION
     Dosage: UNK
     Route: 065
     Dates: start: 201410, end: 201503
  2. MESALAZINE [Suspect]
     Active Substance: MESALAMINE
     Dosage: UNK
     Route: 065
     Dates: start: 201803, end: 201806
  3. AZATHIOPRINE. [Concomitant]
     Active Substance: AZATHIOPRINE
     Dosage: UNK
     Dates: start: 201410, end: 201503
  4. AZATHIOPRINE. [Concomitant]
     Active Substance: AZATHIOPRINE
     Dosage: 100 MILLIGRAM, QD
     Dates: start: 201603
  5. ENTYVIO [Suspect]
     Active Substance: VEDOLIZUMAB
     Indication: PRODUCT USED FOR UNKNOWN INDICATION
     Dosage: 300 MILLIGRAM
     Route: 065
     Dates: start: 201803
  6. MESALAZINE [Suspect]
     Active Substance: MESALAMINE
     Dosage: 1.6 GRAM, QD
     Route: 065
     Dates: start: 201603

REACTIONS (16)
  - Haemorrhage [Recovered/Resolved]
  - Aphthous ulcer [Recovered/Resolved]
  - Abdominal pain [Recovered/Resolved]
  - Intestinal ulcer [Recovered/Resolved]
  - Rectal ulcer [Recovered/Resolved]
  - Faecal calprotectin abnormal [Recovered/Resolved]
  - Polymerase chain reaction [Recovered/Resolved]
  - Mucous stools [Recovered/Resolved]
  - Enanthema [Recovered/Resolved]
  - Haemoglobin abnormal [Recovered/Resolved]
  - Proctitis [Recovered/Resolved]
  - Gastrointestinal scarring [Recovered/Resolved]
  - Frequent bowel movements [Recovered/Resolved]
  - Haematochezia [Recovered/Resolved]
  - Colitis ulcerative [Recovered/Resolved]
  - Serum ferritin increased [Recovered/Resolved]

NARRATIVE: CASE EVENT DATE: 201601
